FAERS Safety Report 5546820-1 (Version None)
Quarter: 2007Q4

REPORT INFORMATION
  Report Type: 
  Country: None (occurrence: None)
  Receive Date: 20071126
  Receipt Date: 20070403
  Transmission Date: 20080405
  Serious: Yes (Other)
  Sender: FDA-Public Use
  Company Number: 2007BH004451

PATIENT
  Age: 52 Year
  Sex: Male
  Weight: 117.9352 kg

DRUGS (11)
  1. DIANEAL [Suspect]
     Indication: RENAL FAILURE CHRONIC
     Dosage: IP
     Route: 033
     Dates: start: 20070301, end: 20070101
  2. ALLOPURINOL [Concomitant]
  3. AMLODIPINE [Concomitant]
  4. ACEON [Concomitant]
  5. BENAZEPRIL HYDROCHLORIDE [Concomitant]
  6. CLONIDINE [Concomitant]
  7. DICLOXACILLIN [Concomitant]
  8. INDOMETHACIN [Concomitant]
  9. MINOXIDIL [Concomitant]
  10. NEPHROCAPS [Concomitant]
  11. SEVELAMER [Concomitant]

REACTIONS (1)
  - PERITONITIS BACTERIAL [None]
